FAERS Safety Report 13532696 (Version 1)
Quarter: 2017Q2

REPORT INFORMATION
  Report Type: Spontaneous
  Country: US (occurrence: US)
  Receive Date: 20170510
  Receipt Date: 20170510
  Transmission Date: 20170830
  Serious: No
  Sender: FDA-Public Use
  Company Number: US-PERRIGO-17US000728

PATIENT
  Age: 61 Year
  Sex: Female
  Weight: 62.59 kg

DRUGS (1)
  1. FAMOTIDINE. [Suspect]
     Active Substance: FAMOTIDINE
     Indication: GASTROOESOPHAGEAL REFLUX DISEASE
     Dosage: 20 MG, QD
     Route: 048
     Dates: start: 201601, end: 20170116

REACTIONS (8)
  - Eye swelling [Recovering/Resolving]
  - Throat tightness [Recovering/Resolving]
  - Dyspnoea [Recovering/Resolving]
  - Incorrect drug administration duration [Recovered/Resolved]
  - Paraesthesia [Recovering/Resolving]
  - Ear pruritus [Recovering/Resolving]
  - Incorrect dose administered [Recovered/Resolved]
  - Swelling face [Recovering/Resolving]

NARRATIVE: CASE EVENT DATE: 2016
